FAERS Safety Report 7979850-0 (Version None)
Quarter: 2011Q4

REPORT INFORMATION
  Report Type: 
  Country: None (occurrence: None)
  Receive Date: 20111214
  Receipt Date: 20111207
  Transmission Date: 20120403
  Serious: Yes (Hospitalization, Other)
  Sender: FDA-Public Use
  Company Number: US-ROCHE-683069

PATIENT
  Sex: Male
  Weight: 84.4 kg

DRUGS (1)
  1. ACCUTANE [Suspect]
     Indication: ACNE
     Dosage: 40 MG DAILY ALTERNATING WITH 80 MG DAILY ON ALTERNATE DAYS
     Route: 048
     Dates: start: 20040505, end: 20041115

REACTIONS (12)
  - LIP DRY [None]
  - ILEUS [None]
  - ABDOMINAL ABSCESS [None]
  - CHEILITIS [None]
  - BLOOD TRIGLYCERIDES INCREASED [None]
  - UPPER RESPIRATORY TRACT INFECTION [None]
  - LYMPHADENITIS [None]
  - LIGAMENT SPRAIN [None]
  - INFLAMMATORY BOWEL DISEASE [None]
  - CROHN'S DISEASE [None]
  - KELOID SCAR [None]
  - DEPRESSION [None]
